FAERS Safety Report 14963205 (Version 1)
Quarter: 2018Q2

REPORT INFORMATION
  Report Type: Spontaneous
  Country: US (occurrence: US)
  Receive Date: 20180601
  Receipt Date: 20180601
  Transmission Date: 20180711
  Serious: No
  Sender: FDA-Public Use
  Company Number: US-GLAXOSMITHKLINE-US2018094080

PATIENT
  Age: 60 Year
  Sex: Female

DRUGS (7)
  1. TRELEGY ELLIPTA [Suspect]
     Active Substance: FLUTICASONE FUROATE\UMECLIDINIUM BROMIDE\VILANTEROL TRIFENATATE
     Indication: PNEUMONIA
  2. AZELASTINE NASAL SOLUTION [Concomitant]
  3. TRIMIPRAMINE [Concomitant]
     Active Substance: TRIMIPRAMINE
  4. LISINOPRIL. [Concomitant]
     Active Substance: LISINOPRIL
  5. TRELEGY ELLIPTA [Suspect]
     Active Substance: FLUTICASONE FUROATE\UMECLIDINIUM BROMIDE\VILANTEROL TRIFENATATE
     Indication: BRONCHITIS
     Dosage: 1 PUFF(S), QD
     Route: 055
     Dates: start: 20180523
  6. PROAIR HFA [Concomitant]
     Active Substance: ALBUTEROL SULFATE
  7. LYRICA [Concomitant]
     Active Substance: PREGABALIN

REACTIONS (2)
  - Product use in unapproved indication [Not Recovered/Not Resolved]
  - Sensation of foreign body [Not Recovered/Not Resolved]

NARRATIVE: CASE EVENT DATE: 20180523
